FAERS Safety Report 8287082-4 (Version None)
Quarter: 2012Q2

REPORT INFORMATION
  Report Type: 
  Country: None (occurrence: None)
  Receive Date: 20120416
  Receipt Date: 20120312
  Transmission Date: 20120825
  Serious: Yes (Other)
  Sender: FDA-Public Use
  Company Number: PL-ROCHE-1036414

PATIENT
  Age: 64 Year
  Sex: Male
  Weight: 77.1 kg

DRUGS (7)
  1. CAPTOPRIL [Concomitant]
     Dates: start: 20071001
  2. QUINAPRIL HCL [Concomitant]
     Dates: start: 20120218
  3. DICLAC [Concomitant]
     Dates: start: 20120131
  4. VEMURAFENIB [Suspect]
     Indication: MALIGNANT MELANOMA
     Route: 048
     Dates: start: 20120103
  5. AMLODIPINE BESYLATE [Concomitant]
     Dates: start: 20120218
  6. HYDROCORTISONUM [Concomitant]
     Dates: start: 20120131
  7. NEBIVOLOL [Concomitant]
     Dates: start: 20120218

REACTIONS (1)
  - ACANTHOSIS [None]
